FAERS Safety Report 6496096-6 (Version None)
Quarter: 2009Q4

REPORT INFORMATION
  Report Type: 
  Country: None (occurrence: None)
  Receive Date: 20091214
  Receipt Date: 20090928
  Transmission Date: 20100525
  Serious: No
  Sender: FDA-Public Use
  Company Number: US-BRISTOL-MYERS SQUIBB COMPANY-14796650

PATIENT
  Age: 14 Year
  Sex: Male
  Weight: 48 kg

DRUGS (4)
  1. ABILIFY [Suspect]
     Indication: DEPRESSION
     Dates: start: 20090918
  2. ABILIFY [Suspect]
     Indication: MOOD SWINGS
     Dates: start: 20090918
  3. LUVOX [Concomitant]
  4. RISPERDAL [Concomitant]
     Dosage: DISCONTINUED

REACTIONS (1)
  - SEDATION [None]
